FAERS Safety Report 19832951 (Version 1)
Quarter: 2021Q3

REPORT INFORMATION
  Report Type: Spontaneous
  Country: CN (occurrence: CN)
  Receive Date: 20210915
  Receipt Date: 20210915
  Transmission Date: 20211014
  Serious: Yes (Hospitalization, Other)
  Sender: FDA-Public Use
  Company Number: CN-GLAXOSMITHKLINE-CNCH2021APC062716

PATIENT
  Age: 43 Year
  Sex: Female
  Weight: 78 kg

DRUGS (2)
  1. IBUPROFEN. [Suspect]
     Active Substance: IBUPROFEN
     Indication: TOOTHACHE
     Dosage: 1 DF, QD
     Route: 048
     Dates: start: 20210807, end: 20210807
  2. IBUPROFEN. [Suspect]
     Active Substance: IBUPROFEN
     Dosage: 1 DF, BID
     Route: 048
     Dates: start: 20210808, end: 20210810

REACTIONS (9)
  - Pruritus [Recovering/Resolving]
  - Mouth ulceration [Recovering/Resolving]
  - Drug eruption [Recovering/Resolving]
  - Rash papular [Recovering/Resolving]
  - Erythema [Recovering/Resolving]
  - Papule [Recovering/Resolving]
  - Rash [Recovering/Resolving]
  - Blister [Recovering/Resolving]
  - Skin injury [Recovering/Resolving]

NARRATIVE: CASE EVENT DATE: 20210810
